FAERS Safety Report 7157570-2 (Version None)
Quarter: 2010Q4

REPORT INFORMATION
  Report Type: 
  Country: None (occurrence: None)
  Receive Date: 20101214
  Receipt Date: 20100224
  Transmission Date: 20110411
  Serious: No
  Sender: FDA-Public Use
  Company Number: US-ASTRAZENECA-2010SE08165

PATIENT
  Age: 63 Year
  Sex: Male
  Weight: 81.6 kg

DRUGS (7)
  1. CRESTOR [Suspect]
     Indication: HYPERCHOLESTEROLAEMIA
     Route: 048
     Dates: start: 20070101, end: 20090101
  2. LEVOTHYROXINE [Concomitant]
     Indication: HYPOTHYROIDISM
  3. MULTI-VITAMINS [Concomitant]
  4. ASPIRIN [Concomitant]
  5. FISH OIL [Concomitant]
  6. CO-Q10 [Concomitant]
  7. NIACIN [Concomitant]

REACTIONS (2)
  - MYALGIA [None]
  - PIRIFORMIS SYNDROME [None]
